FAERS Safety Report 7686164-5 (Version None)
Quarter: 2011Q3

REPORT INFORMATION
  Report Type: 
  Country: None (occurrence: None)
  Receive Date: 20110816
  Receipt Date: 20110816
  Transmission Date: 20111222
  Serious: Yes (Hospitalization, Other)
  Sender: FDA-Public Use
  Company Number: PHHO2010KR11118

PATIENT
  Sex: Female

DRUGS (1)
  1. GLEEVEC [Suspect]
     Indication: PULMONARY ARTERIAL HYPERTENSION
     Dosage: 100 MG, QD
     Route: 048
     Dates: start: 20100428, end: 20100705

REACTIONS (11)
  - OCULAR ICTERUS [None]
  - FATIGUE [None]
  - JAUNDICE [None]
  - DYSPNOEA [None]
  - HEPATIC CONGESTION [None]
  - HYPOAESTHESIA [None]
  - TRICUSPID VALVE INCOMPETENCE [None]
  - BLOOD PRESSURE INCREASED [None]
  - DIZZINESS [None]
  - HYPERHIDROSIS [None]
  - OEDEMA PERIPHERAL [None]
